FAERS Safety Report 17184890 (Version 1)
Quarter: 2019Q4

REPORT INFORMATION
  Report Type: Spontaneous
  Country: US (occurrence: US)
  Receive Date: 20191219
  Receipt Date: 20191219
  Transmission Date: 20200122
  Serious: Yes (Disabling)
  Sender: FDA-Public Use
  Company Number: None

PATIENT
  Age: 25 Month
  Sex: Male
  Weight: 13.15 kg

DRUGS (2)
  1. GADAVIST [Suspect]
     Active Substance: GADOBUTROL
  2. VITAMINS [Concomitant]
     Active Substance: VITAMINS

REACTIONS (12)
  - Crying [None]
  - Muscle atrophy [None]
  - Dry eye [None]
  - Pain in extremity [None]
  - Muscular weakness [None]
  - Blood creatinine increased [None]
  - Decreased appetite [None]
  - Mucosal dryness [None]
  - Dysstasia [None]
  - Mobility decreased [None]
  - Maternal exposure during breast feeding [None]
  - Abdominal pain [None]

NARRATIVE: CASE EVENT DATE: 20191112
